FAERS Safety Report 10353548 (Version 1)
Quarter: 2014Q3

REPORT INFORMATION
  Report Type: Spontaneous
  Country: US (occurrence: US)
  Receive Date: 20140731
  Receipt Date: 20140731
  Transmission Date: 20150326
  Serious: Yes (Hospitalization)
  Sender: FDA-Public Use
  Company Number: US-BIOGENIDEC-2014BI074530

PATIENT
  Age: 48 Year
  Sex: Female

DRUGS (1)
  1. TECFIDERA [Suspect]
     Active Substance: DIMETHYL FUMARATE
     Indication: MULTIPLE SCLEROSIS
     Dates: start: 20140308

REACTIONS (4)
  - Back pain [Recovered/Resolved with Sequelae]
  - Exostosis [Recovered/Resolved]
  - Intervertebral disc protrusion [Recovered/Resolved]
  - Neck surgery [Recovered/Resolved with Sequelae]

NARRATIVE: CASE EVENT DATE: 20140602
